FAERS Safety Report 8399717-6 (Version None)
Quarter: 2012Q2

REPORT INFORMATION
  Report Type: 
  Country: None (occurrence: None)
  Receive Date: 20120531
  Receipt Date: 20120524
  Transmission Date: 20120825
  Serious: Yes (Hospitalization)
  Sender: FDA-Public Use
  Company Number: US-B.I. PHARMACEUTICALS,INC./RIDGEFIELD-2012-BP-06250BP

PATIENT
  Sex: Female
  Weight: 63.5 kg

DRUGS (11)
  1. TOPROL-XL [Concomitant]
  2. BUMEX [Concomitant]
  3. OMEPRAZOLE [Concomitant]
  4. SPIRIVA [Concomitant]
  5. PRADAXA [Suspect]
     Indication: ATRIAL FIBRILLATION
     Dosage: 300 MG
     Dates: start: 20101223, end: 20120324
  6. SYMBICORT [Concomitant]
  7. VASOTEC [Concomitant]
  8. ENALAPRIL MALEATE [Concomitant]
  9. LIPITOR [Concomitant]
  10. PRADAXA [Suspect]
     Indication: CEREBROVASCULAR ACCIDENT PROPHYLAXIS
  11. ASPIRIN [Concomitant]

REACTIONS (1)
  - GASTROINTESTINAL HAEMORRHAGE [None]
